FAERS Safety Report 7202012-1 (Version None)
Quarter: 2010Q4

REPORT INFORMATION
  Report Type: 
  Country: None (occurrence: None)
  Receive Date: 20101220
  Receipt Date: 20101209
  Transmission Date: 20110411
  Serious: No
  Sender: FDA-Public Use
  Company Number: 021721

PATIENT
  Sex: Female
  Weight: 92.5338 kg

DRUGS (2)
  1. LEVETIRACETAM [Suspect]
     Indication: CONVULSION
     Dosage: SEE IMAGE
     Route: 048
  2. LAMICTAL [Concomitant]

REACTIONS (4)
  - CONVULSION [None]
  - HEADACHE [None]
  - INAPPROPRIATE SCHEDULE OF DRUG ADMINISTRATION [None]
  - NECK PAIN [None]
